FAERS Safety Report 25593891 (Version 1)
Quarter: 2025Q3

REPORT INFORMATION
  Report Type: Spontaneous
  Country: US (occurrence: US)
  Receive Date: 20250723
  Receipt Date: 20250723
  Transmission Date: 20251021
  Serious: Yes (Hospitalization)
  Sender: NOVARTIS
  Company Number: US-002147023-NVSC2025US112923

PATIENT
  Sex: Female

DRUGS (1)
  1. LUTATHERA [Suspect]
     Active Substance: LUTETIUM OXODOTREOTIDE LU-177
     Indication: Neuroendocrine tumour
     Route: 042
     Dates: start: 20250614

REACTIONS (4)
  - Hypoglycaemia [Unknown]
  - Nausea [Unknown]
  - Visual impairment [Unknown]
  - Swelling face [Unknown]

NARRATIVE: CASE EVENT DATE: 20250614
